FAERS Safety Report 6967714-0 (Version None)
Quarter: 2010Q3

REPORT INFORMATION
  Report Type: 
  Country: None (occurrence: None)
  Receive Date: 20100907
  Receipt Date: 20100831
  Transmission Date: 20110219
  Serious: Yes (Hospitalization)
  Sender: FDA-Public Use
  Company Number: US-BAYER-201019653BCC

PATIENT
  Age: 68 Year
  Sex: Female
  Weight: 50 kg

DRUGS (3)
  1. ASPIRIN [Suspect]
     Indication: HEADACHE
     Dosage: AS USED: 325 MG  UNIT DOSE: 325 MG
     Route: 048
  2. NATURE MADE MULTIVITAMIN [Concomitant]
     Route: 065
  3. CALTRATE [Concomitant]
     Route: 065

REACTIONS (1)
  - EPISTAXIS [None]
